FAERS Safety Report 10195604 (Version 3)
Quarter: 2014Q3

REPORT INFORMATION
  Report Type: Spontaneous
  Country: FR (occurrence: FR)
  Receive Date: 20140527
  Receipt Date: 20140801
  Transmission Date: 20150326
  Serious: Yes (Other)
  Sender: FDA-Public Use
  Company Number: FR-ROCHE-1407882

PATIENT
  Age: 71 Year
  Sex: Male
  Weight: 75 kg

DRUGS (10)
  1. POVIDONE-IODINE. [Suspect]
     Active Substance: POVIDONE-IODINE
     Indication: INFECTION PROPHYLAXIS
     Route: 003
     Dates: start: 201405
  2. VENTOLINE [Concomitant]
     Active Substance: ALBUTEROL
  3. LUCENTIS [Suspect]
     Active Substance: RANIBIZUMAB
     Indication: AGE-RELATED MACULAR DEGENERATION
     Dosage: SEVENTH REGIMEN RECEIVED IN MAY/2014
     Route: 050
  4. AZITHROMYCIN [Suspect]
     Active Substance: AZITHROMYCIN ANHYDROUS
     Indication: PROPHYLAXIS
     Route: 047
     Dates: start: 201405
  5. TAHOR [Concomitant]
     Active Substance: ATORVASTATIN CALCIUM
  6. PULMICORT TURBUHALER [Concomitant]
     Active Substance: BUDESONIDE
  7. OMIX [Concomitant]
     Active Substance: TAMSULOSIN HYDROCHLORIDE
  8. KARDEGIC [Concomitant]
     Active Substance: ASPIRIN LYSINE
  9. OXYBUPROCAINE [Concomitant]
     Active Substance: BENOXINATE
     Route: 065
  10. CARDENSIEL [Concomitant]
     Active Substance: BISOPROLOL FUMARATE

REACTIONS (3)
  - Rash [Unknown]
  - Eczema [Recovered/Resolved]
  - Conjunctivitis [Recovered/Resolved]

NARRATIVE: CASE EVENT DATE: 20140517
